FAERS Safety Report 20030064 (Version 1)
Quarter: 2021Q4

REPORT INFORMATION
  Report Type: Report from Study
  Country: JP (occurrence: JP)
  Receive Date: 20211103
  Receipt Date: 20211103
  Transmission Date: 20220303
  Serious: Yes (Other)
  Sender: FDA-Public Use
  Company Number: JP-RECORDATI RARE DISEASE INC.-2021004482

PATIENT
  Age: 1 Month
  Sex: Male
  Weight: .731 kg

DRUGS (22)
  1. NEOPROFEN [Suspect]
     Active Substance: IBUPROFEN LYSINE
     Indication: Patent ductus arteriosus
     Dosage: 8 MILLIGRAM, QD
     Route: 042
     Dates: start: 20201209, end: 20201210
  2. NEOPROFEN [Suspect]
     Active Substance: IBUPROFEN LYSINE
     Dosage: 4 MILLIGRAM, QD
     Route: 042
     Dates: start: 20201210, end: 20201210
  3. DEXTROSE [Concomitant]
     Active Substance: DEXTROSE
     Indication: Parenteral nutrition
     Dosage: UNK
     Route: 042
     Dates: start: 20201111, end: 20201216
  4. PLEAMIN P [Concomitant]
     Indication: Parenteral nutrition
     Dosage: UNK
     Route: 042
     Dates: start: 20201111, end: 20201216
  5. SODIUM PHOSPHATE [Concomitant]
     Active Substance: SODIUM PHOSPHATE
     Indication: Hyponatraemia
     Dosage: UNK
     Route: 042
     Dates: start: 20201111, end: 20201216
  6. VITAJECT [CYANOCOBALAMIN;PYRIDOXINE HYDROCHLORIDE;THIAMINE HYDROCHLORI [Concomitant]
     Indication: Parenteral nutrition
     Dosage: UNK
     Route: 042
     Dates: start: 20201111, end: 20201216
  7. ELEJECT [Concomitant]
     Indication: Parenteral nutrition
     Dosage: UNK
     Route: 042
     Dates: start: 20201111, end: 20201216
  8. SODIUM CHLORIDE [Concomitant]
     Active Substance: SODIUM CHLORIDE
     Indication: Hyponatraemia
     Dosage: UNK
     Route: 042
     Dates: start: 20201111, end: 20201219
  9. CALCIUM GLUCONATE [Concomitant]
     Active Substance: CALCIUM GLUCONATE
     Indication: Hypocalcaemia
     Dosage: UNK
     Route: 042
     Dates: start: 20201110, end: 20201211
  10. POTASSIUM ASPARTATE [Concomitant]
     Active Substance: POTASSIUM ASPARTATE
     Indication: Hyperkalaemia
     Dosage: UNK
     Route: 042
     Dates: start: 20201112, end: 20201215
  11. SODIUM CHLORIDE [Concomitant]
     Active Substance: SODIUM CHLORIDE
     Indication: Hyponatraemia
     Dosage: UNK
     Route: 042
     Dates: start: 20201113, end: 20201216
  12. WATER FOR INJECTION [Concomitant]
     Active Substance: WATER
     Indication: Parenteral nutrition
     Dosage: UNK
     Route: 042
     Dates: start: 20201111, end: 20201216
  13. DOPAMINE HYDROCHLORIDE [Concomitant]
     Active Substance: DOPAMINE HYDROCHLORIDE
     Indication: Patent ductus arteriosus
     Dosage: UNK
     Route: 042
     Dates: start: 20201208, end: 20201216
  14. DEXTROSE [Concomitant]
     Active Substance: DEXTROSE
     Indication: Product used for unknown indication
     Dosage: UNK
     Route: 042
     Dates: start: 20201208, end: 20201216
  15. FUROSEMIDE [Concomitant]
     Active Substance: FUROSEMIDE
     Indication: Chronic respiratory disease
     Dosage: UNK
     Route: 042
     Dates: start: 20201119, end: 20201214
  16. PHENOBARBITAL SODIUM [Concomitant]
     Active Substance: PHENOBARBITAL SODIUM
     Indication: Neonatal seizure
     Dosage: UNK
     Route: 042
     Dates: start: 20201110, end: 20201218
  17. MEROPENEM [Concomitant]
     Active Substance: MEROPENEM
     Indication: Bacteraemia
     Dosage: UNK
     Route: 042
     Dates: start: 20201120, end: 20201218
  18. MEROPENEM [Concomitant]
     Active Substance: MEROPENEM
     Indication: Abdominal infection
  19. VANCOMYCIN [Concomitant]
     Active Substance: VANCOMYCIN
     Indication: Bacteraemia
     Dosage: UNK
     Route: 042
     Dates: start: 20201125, end: 20201214
  20. VANCOMYCIN [Concomitant]
     Active Substance: VANCOMYCIN
     Indication: Abdominal infection
  21. LEVOTHYROXINE SODIUM [Concomitant]
     Active Substance: LEVOTHYROXINE SODIUM
     Indication: Hypothyroidism
     Dosage: UNK
     Route: 048
     Dates: start: 20201207, end: 20210311
  22. HEPARIN SODIUM [Concomitant]
     Active Substance: HEPARIN SODIUM
     Indication: Prophylaxis
     Dosage: UNK
     Route: 042
     Dates: start: 20201110, end: 20201219

REACTIONS (2)
  - Bronchopulmonary dysplasia [Recovering/Resolving]
  - Infantile apnoea [Recovering/Resolving]

NARRATIVE: CASE EVENT DATE: 20201212
